FAERS Safety Report 8197310-1 (Version None)
Quarter: 2012Q1

REPORT INFORMATION
  Report Type: 
  Country: None (occurrence: None)
  Receive Date: 20120309
  Receipt Date: 20120302
  Transmission Date: 20120608
  Serious: No
  Sender: FDA-Public Use
  Company Number: US-PFIZER INC-2012059822

PATIENT
  Age: 55 Year
  Sex: Male
  Weight: 90.703 kg

DRUGS (1)
  1. POTASSIUM PENICILLIN G [Suspect]

REACTIONS (2)
  - DRUG HYPERSENSITIVITY [None]
  - URTICARIA [None]
